FAERS Safety Report 14637374 (Version 1)
Quarter: 2018Q1

REPORT INFORMATION
  Report Type: Spontaneous
  Country: US (occurrence: US)
  Receive Date: 20180314
  Receipt Date: 20180314
  Transmission Date: 20180509
  Serious: No
  Sender: FDA-Public Use
  Company Number: US-ALLERGAN-1765964US

PATIENT

DRUGS (1)
  1. NORCO [Suspect]
     Active Substance: ACETAMINOPHEN\HYDROCODONE BITARTRATE
     Indication: PAIN
     Dosage: 2 DF, QID
     Route: 065

REACTIONS (3)
  - Off label use [Unknown]
  - Panic attack [Unknown]
  - Drug ineffective [Unknown]

NARRATIVE: CASE EVENT DATE: 20171110
